FAERS Safety Report 11223877 (Version 2)
Quarter: 2015Q3

REPORT INFORMATION
  Report Type: Spontaneous
  Country: US (occurrence: US)
  Receive Date: 20150629
  Receipt Date: 20150821
  Transmission Date: 20151125
  Serious: No
  Sender: FDA-Public Use
  Company Number: US-GLENMARK PHARMACEUTICALS INC, USA.-2015GMK017723

PATIENT

DRUGS (4)
  1. SULFAMETHOXAZOLE/TRIMETHOPRIM TABLETS [Suspect]
     Active Substance: SULFAMETHOXAZOLE\TRIMETHOPRIM
     Indication: SINUSITIS
     Dosage: UNK
     Route: 048
     Dates: start: 201309, end: 201309
  2. AMOXICILLIN. [Interacting]
     Active Substance: AMOXICILLIN
     Indication: PRODUCT USED FOR UNKNOWN INDICATION
     Dosage: UNK
     Dates: start: 201309
  3. ZYRTEC [Concomitant]
     Active Substance: CETIRIZINE HYDROCHLORIDE
     Indication: HYPERSENSITIVITY
     Dosage: UNK
  4. BENADRYL [Interacting]
     Active Substance: DIPHENHYDRAMINE HYDROCHLORIDE
     Indication: RASH
     Dosage: UNK
     Dates: start: 201309

REACTIONS (6)
  - Tremor [Unknown]
  - Drug interaction [Unknown]
  - Conversion disorder [None]
  - Abasia [Not Recovered/Not Resolved]
  - Headache [Unknown]
  - Musculoskeletal stiffness [Not Recovered/Not Resolved]

NARRATIVE: CASE EVENT DATE: 201309
